FAERS Safety Report 13449941 (Version 1)
Quarter: 2017Q2

REPORT INFORMATION
  Report Type: Spontaneous
  Country: US (occurrence: US)
  Receive Date: 20170417
  Receipt Date: 20170417
  Transmission Date: 20170830
  Serious: No
  Sender: FDA-Public Use
  Company Number: US-BION-20160323

PATIENT
  Age: 66 Year
  Sex: Female
  Weight: 129.27 kg

DRUGS (7)
  1. ESSENTIAL ONE VITAMIN [Concomitant]
  2. GLUCOSAMINE CHONDROITIN [Concomitant]
     Active Substance: CHONDROITIN SULFATE (BOVINE)\GLUCOSAMINE HYDROCHLORIDE
  3. CHOLESTACARE [Concomitant]
     Active Substance: .BETA.-SITOSTEROL\RED YEAST
  4. ALEVE [Suspect]
     Active Substance: NAPROXEN SODIUM
     Indication: ARTHRALGIA
     Dosage: 2 DF QD
     Route: 048
     Dates: start: 2009
  5. TRIAMTERENE. [Concomitant]
     Active Substance: TRIAMTERENE
  6. HEALTHY HAIR SKIN AND NAILS [Concomitant]
  7. VITAMIN D3 + CALCIUM [Concomitant]

REACTIONS (3)
  - Incorrect drug administration duration [Unknown]
  - Incorrect dose administered [Unknown]
  - Product physical issue [Unknown]
